FAERS Safety Report 9781206 (Version 1)
Quarter: 2013Q4

REPORT INFORMATION
  Report Type: Spontaneous
  Country: US (occurrence: None)
  Receive Date: 20131223
  Receipt Date: 20131223
  Transmission Date: 20140711
  Serious: Yes (Disabling)
  Sender: FDA-Public Use
  Company Number: None

PATIENT
  Age: 59 Year
  Sex: Female
  Weight: 98.43 kg

DRUGS (1)
  1. RESTASIS [Suspect]
     Indication: DRY EYE
     Dates: start: 20120420, end: 20130121

REACTIONS (4)
  - Psoriasis [None]
  - Pain in extremity [None]
  - Arthritis [None]
  - Hypersensitivity [None]
